FAERS Safety Report 5927413-0 (Version None)
Quarter: 2008Q4

REPORT INFORMATION
  Report Type: 
  Country: None (occurrence: None)
  Receive Date: 20081021
  Receipt Date: 20081021
  Transmission Date: 20090506
  Serious: Yes (Hospitalization)
  Sender: FDA-Public Use
  Company Number: None

PATIENT
  Age: 61 Year
  Sex: Female
  Weight: 92.5338 kg

DRUGS (1)
  1. VANCOMYCIN [Suspect]
     Indication: CELLULITIS
     Dosage: 2GM Q12H IV
     Route: 042
     Dates: start: 20080923, end: 20080930

REACTIONS (2)
  - BLOOD CREATININE INCREASED [None]
  - DRUG LEVEL ABOVE THERAPEUTIC [None]
